FAERS Safety Report 10573247 (Version 1)
Quarter: 2014Q4

REPORT INFORMATION
  Report Type: Spontaneous
  Country: US (occurrence: None)
  Receive Date: 20141107
  Receipt Date: 20141107
  Transmission Date: 20150529
  Serious: No
  Sender: FDA-Public Use
  Company Number: None

PATIENT
  Age: 24 Year
  Sex: Female
  Weight: 71.67 kg

DRUGS (1)
  1. PHENAZOPYRIDINE. [Suspect]
     Active Substance: PHENAZOPYRIDINE
     Indication: URINARY TRACT INFECTION
     Dosage: 1 PILL AS NEEDED
     Route: 048

REACTIONS (1)
  - Nausea [None]

NARRATIVE: CASE EVENT DATE: 20141105
